FAERS Safety Report 7494588 (Version 2)
Quarter: 2014Q2

REPORT INFORMATION
  Report Type: Spontaneous
  Country: US (occurrence: US)
  Receive Date: 20100722
  Receipt Date: 20140409
  Transmission Date: 20141212
  Serious: Yes (Hospitalization, Other)
  Sender: FDA-Public Use
  Company Number: US-JNJFOC-20100704409

PATIENT
  Age: 30 Year
  Sex: Female
  Weight: 47.63 kg

DRUGS (38)
  1. DURAGESIC [Suspect]
     Indication: JAW FRACTURE
     Route: 062
     Dates: start: 2008, end: 2010
  2. DURAGESIC [Suspect]
     Indication: JAW FRACTURE
     Route: 062
     Dates: start: 2003, end: 2008
  3. DURAGESIC [Suspect]
     Indication: JAW FRACTURE
     Route: 062
     Dates: start: 2005
  4. DURAGESIC [Suspect]
     Indication: SPINAL FRACTURE
     Route: 062
     Dates: start: 2005
  5. DURAGESIC [Suspect]
     Indication: SPINAL FRACTURE
     Route: 062
     Dates: start: 2008, end: 2010
  6. DURAGESIC [Suspect]
     Indication: SPINAL FRACTURE
     Route: 062
     Dates: start: 2003, end: 2008
  7. DURAGESIC [Suspect]
     Indication: FIBROMYALGIA
     Route: 062
     Dates: start: 2003, end: 2008
  8. DURAGESIC [Suspect]
     Indication: FIBROMYALGIA
     Route: 062
     Dates: start: 2008, end: 2010
  9. DURAGESIC [Suspect]
     Indication: FIBROMYALGIA
     Route: 062
     Dates: start: 2005
  10. DURAGESIC [Suspect]
     Indication: ENDOMETRIOSIS
     Route: 062
     Dates: start: 2005
  11. DURAGESIC [Suspect]
     Indication: ENDOMETRIOSIS
     Route: 062
     Dates: start: 2008, end: 2010
  12. DURAGESIC [Suspect]
     Indication: ENDOMETRIOSIS
     Route: 062
     Dates: start: 2003, end: 2008
  13. DURAGESIC [Suspect]
     Indication: MULTIPLE SCLEROSIS
     Route: 062
     Dates: start: 2005
  14. DURAGESIC [Suspect]
     Indication: MULTIPLE SCLEROSIS
     Route: 062
     Dates: start: 2008, end: 2010
  15. DURAGESIC [Suspect]
     Indication: MULTIPLE SCLEROSIS
     Route: 062
     Dates: start: 2003, end: 2008
  16. DURAGESIC [Suspect]
     Indication: JAW FRACTURE
     Route: 062
     Dates: start: 20140105
  17. DURAGESIC [Suspect]
     Indication: JAW FRACTURE
     Route: 062
     Dates: start: 201312
  18. DURAGESIC [Suspect]
     Indication: JAW FRACTURE
     Route: 062
  19. DURAGESIC [Suspect]
     Indication: JAW FRACTURE
     Route: 062
     Dates: start: 2010
  20. DURAGESIC [Suspect]
     Indication: SPINAL FRACTURE
     Route: 062
  21. DURAGESIC [Suspect]
     Indication: SPINAL FRACTURE
     Route: 062
     Dates: start: 2010
  22. DURAGESIC [Suspect]
     Indication: SPINAL FRACTURE
     Route: 062
     Dates: start: 201312
  23. DURAGESIC [Suspect]
     Indication: SPINAL FRACTURE
     Route: 062
     Dates: start: 20140105
  24. DURAGESIC [Suspect]
     Indication: FIBROMYALGIA
     Route: 062
     Dates: start: 2010
  25. DURAGESIC [Suspect]
     Indication: FIBROMYALGIA
     Route: 062
  26. DURAGESIC [Suspect]
     Indication: FIBROMYALGIA
     Route: 062
     Dates: start: 20140105
  27. DURAGESIC [Suspect]
     Indication: FIBROMYALGIA
     Route: 062
     Dates: start: 201312
  28. DURAGESIC [Suspect]
     Indication: ENDOMETRIOSIS
     Route: 062
     Dates: start: 2010
  29. DURAGESIC [Suspect]
     Indication: ENDOMETRIOSIS
     Route: 062
     Dates: start: 201312
  30. DURAGESIC [Suspect]
     Indication: ENDOMETRIOSIS
     Route: 062
     Dates: start: 20140105
  31. DURAGESIC [Suspect]
     Indication: ENDOMETRIOSIS
     Route: 062
  32. DURAGESIC [Suspect]
     Indication: MULTIPLE SCLEROSIS
     Route: 062
     Dates: start: 201312
  33. DURAGESIC [Suspect]
     Indication: MULTIPLE SCLEROSIS
     Route: 062
  34. DURAGESIC [Suspect]
     Indication: MULTIPLE SCLEROSIS
     Route: 062
     Dates: start: 20140105
  35. DURAGESIC [Suspect]
     Indication: MULTIPLE SCLEROSIS
     Route: 062
     Dates: start: 2010
  36. OXYCONTIN [Concomitant]
     Indication: BREAKTHROUGH PAIN
     Route: 048
  37. GABAPENTIN [Concomitant]
     Indication: CONVULSION
     Route: 048
  38. TERIFLUNOMIDE [Concomitant]
     Indication: MULTIPLE SCLEROSIS
     Route: 048

REACTIONS (16)
  - Convulsion [Not Recovered/Not Resolved]
  - Migraine [Not Recovered/Not Resolved]
  - Multiple sclerosis relapse [Not Recovered/Not Resolved]
  - Physical assault [Recovered/Resolved]
  - Victim of sexual abuse [Recovered/Resolved]
  - Jaw fracture [Not Recovered/Not Resolved]
  - Sepsis [Recovered/Resolved]
  - Sinusitis [Not Recovered/Not Resolved]
  - Drug administration error [Not Recovered/Not Resolved]
  - Wrong technique in drug usage process [Not Recovered/Not Resolved]
  - Drug administered at inappropriate site [Not Recovered/Not Resolved]
  - Wrong technique in drug usage process [Not Recovered/Not Resolved]
  - Wrong technique in drug usage process [Not Recovered/Not Resolved]
  - Therapeutic response decreased [Recovered/Resolved]
  - Wrong technique in drug usage process [Not Recovered/Not Resolved]
  - Drug dose omission [Recovered/Resolved]
